FAERS Safety Report 15316328 (Version 1)
Quarter: 2018Q3

REPORT INFORMATION
  Report Type: Spontaneous
  Country: US (occurrence: US)
  Receive Date: 20180816
  Receipt Date: 20180816
  Transmission Date: 20181010
  Serious: No
  Sender: FDA-Public Use
  Company Number: None

PATIENT
  Age: 37 Year
  Sex: Female
  Weight: 93.6 kg

DRUGS (3)
  1. CONTRAVE [Suspect]
     Active Substance: BUPROPION HYDROCHLORIDE\NALTREXONE HYDROCHLORIDE
     Indication: WEIGHT CONTROL
     Dosage: 1 MG ORAL 2 QAM + 1 QPM
     Route: 048
     Dates: start: 20180505, end: 20180508
  2. CONTRAVE [Suspect]
     Active Substance: BUPROPION HYDROCHLORIDE\NALTREXONE HYDROCHLORIDE
     Indication: OBESITY
     Dosage: 1 MG ORAL 2 QAM + 1 QPM
     Route: 048
     Dates: start: 20180505, end: 20180508
  3. JUNEL [Concomitant]
     Active Substance: ETHINYL ESTRADIOL\NORETHINDRONE ACETATE

REACTIONS (9)
  - Scab [None]
  - Swelling face [None]
  - Rash papular [None]
  - Rash [None]
  - Drug eruption [None]
  - Nausea [None]
  - Urticaria [None]
  - Stress [None]
  - Vomiting [None]

NARRATIVE: CASE EVENT DATE: 20180516
